FAERS Safety Report 9478450 (Version 1)
Quarter: 2013Q3

REPORT INFORMATION
  Report Type: Spontaneous
  Country: US (occurrence: US)
  Receive Date: 20130827
  Receipt Date: 20130827
  Transmission Date: 20140515
  Serious: Yes (Hospitalization, Other)
  Sender: FDA-Public Use
  Company Number: US-ELI_LILLY_AND_COMPANY-US201308005250

PATIENT
  Age: 20 Year
  Sex: Male

DRUGS (5)
  1. STRATTERA [Suspect]
     Indication: ATTENTION DEFICIT/HYPERACTIVITY DISORDER
     Dosage: UNK
     Dates: start: 200706, end: 200709
  2. WELLBUTRIN [Suspect]
  3. RISPERDAL [Suspect]
  4. ADDERALL [Suspect]
     Dosage: UNK
     Dates: start: 200709
  5. ADDERALL [Suspect]
     Dosage: 60 MG, QD

REACTIONS (12)
  - Suicidal ideation [Not Recovered/Not Resolved]
  - Aggression [Not Recovered/Not Resolved]
  - Drug dependence [Not Recovered/Not Resolved]
  - Depression [Not Recovered/Not Resolved]
  - Hallucination, visual [Not Recovered/Not Resolved]
  - Hallucination, auditory [Not Recovered/Not Resolved]
  - Paranoia [Not Recovered/Not Resolved]
  - Anxiety [Not Recovered/Not Resolved]
  - Confusional state [Not Recovered/Not Resolved]
  - Drug withdrawal syndrome [Not Recovered/Not Resolved]
  - Social phobia [Not Recovered/Not Resolved]
  - Insomnia [Not Recovered/Not Resolved]
